FAERS Safety Report 20659014 (Version 1)
Quarter: 2022Q1

REPORT INFORMATION
  Report Type: Spontaneous
  Country: IN (occurrence: IN)
  Receive Date: 20220331
  Receipt Date: 20220331
  Transmission Date: 20220423
  Serious: Yes (Other)
  Sender: FDA-Public Use
  Company Number: IN-NOVARTISPH-NVSC2022IN069051

PATIENT
  Age: 49 Year
  Sex: Male

DRUGS (3)
  1. CERITINIB [Suspect]
     Active Substance: CERITINIB
     Indication: Product used for unknown indication
     Dosage: UNK
     Route: 065
     Dates: start: 201901
  2. SOFTOVAC-SF [Concomitant]
     Indication: Product used for unknown indication
     Route: 065
  3. SENERGY [Concomitant]
     Indication: Product used for unknown indication
     Dosage: UNK, QD (1 MONTH)
     Route: 065

REACTIONS (10)
  - Metastases to lung [Unknown]
  - Metastases to lymph nodes [Unknown]
  - Metastases to central nervous system [Unknown]
  - Weight decreased [Unknown]
  - Pleural thickening [Unknown]
  - Transaminases increased [Unknown]
  - Cough [Unknown]
  - Vertebral lesion [Unknown]
  - Lymphadenopathy mediastinal [Unknown]
  - Retroperitoneal lymphadenopathy [Unknown]

NARRATIVE: CASE EVENT DATE: 20200101
